FAERS Safety Report 24873554 (Version 1)
Quarter: 2025Q1

REPORT INFORMATION
  Report Type: Spontaneous
  Country: US (occurrence: None)
  Receive Date: 20250121
  Receipt Date: 20250121
  Transmission Date: 20250408
  Serious: Yes (unspecified)
  Sender: FDA-CTU
  Company Number: None

PATIENT
  Age: 79 Year
  Sex: Male
  Weight: 85.5 kg

DRUGS (9)
  1. TEZSPIRE [Suspect]
     Active Substance: TEZEPELUMAB-EKKO
     Indication: Asthma
     Dates: start: 20241001, end: 20241201
  2. ELIQUIS [Concomitant]
     Active Substance: APIXABAN
  3. TAMSULOSIN [Concomitant]
     Active Substance: TAMSULOSIN
  4. OMEPRAZOLE [Concomitant]
     Active Substance: OMEPRAZOLE
  5. TRELEGY ELLIPTA [Concomitant]
     Active Substance: FLUTICASONE FUROATE\UMECLIDINIUM BROMIDE\VILANTEROL TRIFENATATE
  6. DOXAZOSIN [Concomitant]
     Active Substance: DOXAZOSIN MESYLATE
  7. ROSUVASTATIN [Concomitant]
     Active Substance: ROSUVASTATIN
  8. AMLODIPINE [Concomitant]
     Active Substance: AMLODIPINE BESYLATE
  9. SINGULAIR [Concomitant]
     Active Substance: MONTELUKAST SODIUM

REACTIONS (5)
  - Eye pruritus [None]
  - Eye irritation [None]
  - Eye pain [None]
  - Blepharitis [None]
  - Dry eye [None]

NARRATIVE: CASE EVENT DATE: 20241001
